FAERS Safety Report 22039116 (Version 4)
Quarter: 2023Q2

REPORT INFORMATION
  Report Type: Spontaneous
  Country: BR (occurrence: BR)
  Receive Date: 20230227
  Receipt Date: 20230410
  Transmission Date: 20230722
  Serious: Yes (Other)
  Sender: FDA-Public Use
  Company Number: BR-002147023-NVSC2023BR041678

PATIENT
  Sex: Female

DRUGS (3)
  1. ZOLPIDEM TARTRATE [Suspect]
     Active Substance: ZOLPIDEM TARTRATE
     Indication: Insomnia
     Dosage: UNK UNK, CONT(FIRST NIGHT)
     Route: 065
  2. ZOLPIDEM TARTRATE [Suspect]
     Active Substance: ZOLPIDEM TARTRATE
     Dosage: 2 DOSAGE FORM, CONT (SECOND NIGHT)
     Route: 065
  3. ZOLPIDEM TARTRATE [Suspect]
     Active Substance: ZOLPIDEM TARTRATE
     Dosage: 3 DOSAGE FORM, CONT
     Route: 065

REACTIONS (5)
  - Intentional product misuse [Unknown]
  - Sleep disorder [Unknown]
  - Product physical issue [Unknown]
  - Intentional overdose [Unknown]
  - Drug ineffective [Unknown]
